FAERS Safety Report 15645051 (Version 1)
Quarter: 2018Q4

REPORT INFORMATION
  Report Type: Spontaneous
  Country: US (occurrence: US)
  Receive Date: 20181121
  Receipt Date: 20181121
  Transmission Date: 20190205
  Serious: No
  Sender: FDA-Public Use
  Company Number: US-PFIZER INC-2018001412

PATIENT
  Age: 50 Year
  Sex: Female

DRUGS (4)
  1. DOCETAXEL. [Suspect]
     Active Substance: DOCETAXEL
     Dosage: 120 MG, CYCLIC (EVERY 3 WEEKS FOR 4 CYCLES)
     Dates: start: 20120212, end: 20120326
  2. NEOSAR [Concomitant]
     Active Substance: CYCLOPHOSPHAMIDE
     Indication: BREAST CANCER
     Dosage: UNK
     Dates: start: 2012
  3. DIOVAN [Concomitant]
     Active Substance: VALSARTAN
     Dosage: UNK
     Dates: start: 2010, end: 2012
  4. FERROUS SULFATE. [Concomitant]
     Active Substance: FERROUS SULFATE
     Dosage: UNK
     Dates: start: 2010, end: 2012

REACTIONS (6)
  - Lymphoedema [Unknown]
  - Hair colour changes [Unknown]
  - Madarosis [Unknown]
  - Alopecia [Recovered/Resolved]
  - Hair texture abnormal [Unknown]
  - Hair disorder [Unknown]

NARRATIVE: CASE EVENT DATE: 2012
